FAERS Safety Report 19399239 (Version 1)
Quarter: 2021Q2

REPORT INFORMATION
  Report Type: Spontaneous
  Country: GB (occurrence: GB)
  Receive Date: 20210610
  Receipt Date: 20210610
  Transmission Date: 20210717
  Serious: Yes (Disabling, Other)
  Sender: FDA-Public Use
  Company Number: GB-MYLANLABS-2021M1033656

PATIENT
  Age: 57 Year
  Sex: Female
  Weight: 82.55 kg

DRUGS (5)
  1. LITHIUM. [Suspect]
     Active Substance: LITHIUM
     Indication: ILL-DEFINED DISORDER
     Dosage: 800 MILLIGRAM, QD
     Route: 048
     Dates: start: 2002
  2. SERTRALINE HYDROCHLORIDE. [Suspect]
     Active Substance: SERTRALINE HYDROCHLORIDE
     Indication: ILL-DEFINED DISORDER
     Dosage: 100 MILLIGRAM, QD
     Route: 048
     Dates: start: 2000
  3. TRAZODONE [Suspect]
     Active Substance: TRAZODONE HYDROCHLORIDE
     Indication: ILL-DEFINED DISORDER
     Dosage: 600MG NOW REDUCED TO 150MG
     Route: 048
     Dates: start: 2001
  4. DEPAKOTE [Suspect]
     Active Substance: DIVALPROEX SODIUM
     Indication: ILL-DEFINED DISORDER
     Dosage: 500MG DAILY
     Route: 048
     Dates: start: 2016
  5. DEPIXOL                            /00109702/ [Suspect]
     Active Substance: FLUPENTIXOL DIHYDROCHLORIDE
     Indication: ILL-DEFINED DISORDER
     Dosage: 9 MILLIGRAM, QD
     Route: 048
     Dates: start: 2001, end: 202008

REACTIONS (5)
  - Parkinson^s disease [Unknown]
  - Gait disturbance [Unknown]
  - Tremor [Unknown]
  - Amnesia [Unknown]
  - Confusional state [Unknown]

NARRATIVE: CASE EVENT DATE: 2014
